FAERS Safety Report 20784807 (Version 1)
Quarter: 2022Q2

REPORT INFORMATION
  Report Type: Report from Study
  Country: US (occurrence: US)
  Receive Date: 20220504
  Receipt Date: 20220504
  Transmission Date: 20220721
  Serious: Yes (Hospitalization, Other)
  Sender: FDA-Public Use
  Company Number: US-BRISTOL-MYERS SQUIBB COMPANY-2022-030549

PATIENT
  Age: 65 Year
  Sex: Female
  Weight: 58.5 kg

DRUGS (2)
  1. NIVOLUMAB [Suspect]
     Active Substance: NIVOLUMAB
     Indication: Glioblastoma
     Route: 065
     Dates: start: 20220322, end: 20220405
  2. IPILIMUMAB [Suspect]
     Active Substance: IPILIMUMAB
     Indication: Glioblastoma
     Route: 065
     Dates: start: 20220322, end: 20220322

REACTIONS (1)
  - Hemiparesis [Recovered/Resolved with Sequelae]

NARRATIVE: CASE EVENT DATE: 20220408
